FAERS Safety Report 18746497 (Version 2)
Quarter: 2021Q1

REPORT INFORMATION
  Report Type: Spontaneous
  Country: CN (occurrence: CN)
  Receive Date: 20210115
  Receipt Date: 20210119
  Transmission Date: 20210419
  Serious: Yes (Other)
  Sender: FDA-Public Use
  Company Number: CN-PFIZER INC-2021011199

PATIENT
  Age: 67 Year
  Sex: Female

DRUGS (6)
  1. CISPLATIN. [Suspect]
     Active Substance: CISPLATIN
     Dosage: 40 MG, 1X/DAY (DAYS 3?5, EVERY 21 DAYS)
     Dates: start: 201702, end: 201702
  2. PACLITAXEL. [Suspect]
     Active Substance: PACLITAXEL
     Dosage: 240 MG, 1X/DAY
     Dates: start: 201702, end: 201702
  3. CISPLATIN. [Suspect]
     Active Substance: CISPLATIN
     Indication: OVARIAN CANCER STAGE III
     Dosage: UNK, CYCLIC (3{CYCLICAL} , CYCLIC (TP))
     Dates: start: 201702, end: 2017
  4. CISPLATIN. [Suspect]
     Active Substance: CISPLATIN
     Dosage: 40 MG, 1X/DAY (DAYS 3?5, EVERY 21 DAYS)
     Dates: start: 201702, end: 201702
  5. PACLITAXEL. [Suspect]
     Active Substance: PACLITAXEL
     Dosage: 270 MG, 1X/DAY
     Dates: start: 201702, end: 201702
  6. PACLITAXEL. [Suspect]
     Active Substance: PACLITAXEL
     Indication: OVARIAN CANCER STAGE III
     Dosage: UNK, CYCLIC (3{CYCLICAL}, CYCLIC (TP))
     Dates: start: 201702, end: 2017

REACTIONS (4)
  - Gastrointestinal disorder [Unknown]
  - Toxicity to various agents [Unknown]
  - Myelosuppression [Unknown]
  - Drug intolerance [Unknown]

NARRATIVE: CASE EVENT DATE: 2017
